APPROVED DRUG PRODUCT: ARGATROBAN
Active Ingredient: ARGATROBAN
Strength: 250MG/2.5ML (100MG/ML)
Dosage Form/Route: INJECTABLE;INJECTION
Application: A202626 | Product #001 | TE Code: AP
Applicant: MYLAN INSTITUTIONAL LLC
Approved: Jun 30, 2014 | RLD: No | RS: No | Type: RX